FAERS Safety Report 7962954 (Version 4)
Quarter: 2013Q1

REPORT INFORMATION
  Report Type: Spontaneous
  Country: US (occurrence: US)
  Receive Date: 20110526
  Receipt Date: 20130218
  Transmission Date: 20140127
  Serious: Yes (Other)
  Sender: FDA-Public Use
  Company Number: PHHY2011US15769

PATIENT
  Age: 59 None
  Sex: Female
  Weight: 99.77 kg

DRUGS (13)
  1. GLEEVEC [Suspect]
     Indication: CHRONIC MYELOID LEUKAEMIA
     Dosage: 300 MG, DAILY
     Route: 048
     Dates: start: 20101207, end: 20120327
  2. GLEEVEC [Suspect]
     Dosage: 600 MG, DAILY
     Route: 048
     Dates: start: 20101208
  3. GLEEVEC [Suspect]
     Dosage: 400 MG, DAILY
     Route: 048
     Dates: start: 20111210
  4. GLEEVEC [Suspect]
     Dosage: 300 MG, DAILY
     Route: 048
  5. GLEEVEC [Suspect]
  6. AMITRIPTYLINE HYDROCHLORIDE [Concomitant]
     Dosage: UNK UKN, UNK
  7. PRAVASTATIN SODIUM [Concomitant]
     Dosage: UNK UKN, UNK
  8. OMEPRAZOLE [Concomitant]
     Dosage: UNK UKN, UNK
  9. ADVAIR DISKUS [Concomitant]
     Dosage: UNK UKN, UNK
  10. JANUVIA [Concomitant]
     Dosage: UNK UKN, UNK
  11. CITALOPRAM HYDROBROMIDE [Concomitant]
     Dosage: UNK UKN, UNK
  12. CALCIUM [Concomitant]
     Dosage: UNK UKN, UNK
  13. VITAMIN D [Concomitant]
     Dosage: UNK UKN, UNK

REACTIONS (20)
  - Skin haemorrhage [Not Recovered/Not Resolved]
  - Skin fissures [Not Recovered/Not Resolved]
  - Pain in extremity [Not Recovered/Not Resolved]
  - Asthenopia [Not Recovered/Not Resolved]
  - Hair texture abnormal [Not Recovered/Not Resolved]
  - Mass [Not Recovered/Not Resolved]
  - Skin irritation [Unknown]
  - Tongue haemorrhage [Not Recovered/Not Resolved]
  - Blister [Not Recovered/Not Resolved]
  - Eye swelling [Not Recovered/Not Resolved]
  - Fatigue [Not Recovered/Not Resolved]
  - Dry skin [Not Recovered/Not Resolved]
  - Eyelid oedema [Not Recovered/Not Resolved]
  - Eye irritation [Unknown]
  - Pruritus [Not Recovered/Not Resolved]
  - Skin exfoliation [Not Recovered/Not Resolved]
  - Contusion [Not Recovered/Not Resolved]
  - Mouth ulceration [Not Recovered/Not Resolved]
  - Erythema [Not Recovered/Not Resolved]
  - Rash [Not Recovered/Not Resolved]
